FAERS Safety Report 24317737 (Version 1)
Quarter: 2024Q3

REPORT INFORMATION
  Report Type: Spontaneous
  Country: CA (occurrence: CA)
  Receive Date: 20240913
  Receipt Date: 20240913
  Transmission Date: 20241016
  Serious: Yes (Hospitalization, Disabling, Congenital Anomaly, Other)
  Sender: COVIS PHARMA
  Company Number: CA-Covis Pharma Europe B.V.-2024COV01107

PATIENT
  Age: 80 Year
  Sex: Male
  Weight: 89 kg

DRUGS (35)
  1. ALVESCO [Suspect]
     Active Substance: CICLESONIDE
  2. ALVESCO [Suspect]
     Active Substance: CICLESONIDE
  3. CICLESONIDE [Suspect]
     Active Substance: CICLESONIDE
  4. CICLESONIDE [Suspect]
     Active Substance: CICLESONIDE
  5. TUDORZA PRESSAIR [Suspect]
     Active Substance: ACLIDINIUM BROMIDE
  6. ACETYLCYSTEINE [Suspect]
     Active Substance: ACETYLCYSTEINE
  7. ASPIRIN [Suspect]
     Active Substance: ASPIRIN
  8. ALBUTEROL SULFATE [Suspect]
     Active Substance: ALBUTEROL SULFATE
  9. AMLODIPINE [Suspect]
     Active Substance: AMLODIPINE BESYLATE
  10. ASACOL [Suspect]
     Active Substance: MESALAMINE
  11. AZITHROMYCIN [Suspect]
     Active Substance: AZITHROMYCIN
  12. BUDESONIDE [Suspect]
     Active Substance: BUDESONIDE
  13. BUDESONIDE\FORMOTEROL [Suspect]
     Active Substance: BUDESONIDE\FORMOTEROL
  14. DOXYCYCLINE [Suspect]
     Active Substance: DOXYCYCLINE\DOXYCYCLINE HYCLATE
  15. FINASTERIDE [Suspect]
     Active Substance: FINASTERIDE
  16. INFLUENZA VIRUS VACCINE [Suspect]
     Active Substance: INFLUENZA VIRUS VACCINE
  17. INFLUENZA VIRUS VACCINE [Suspect]
     Active Substance: INFLUENZA VIRUS VACCINE
  18. LEVOFLOXACIN [Suspect]
     Active Substance: LEVOFLOXACIN
  19. LEVOFLOXACIN HEMIHYDRATE [Suspect]
     Active Substance: LEVOFLOXACIN
  20. LYRICA [Suspect]
     Active Substance: PREGABALIN
  21. MELATONIN [Suspect]
     Active Substance: MELATONIN
  22. MESALAMINE [Suspect]
     Active Substance: MESALAMINE
  23. MORNIFLUMATE [Suspect]
     Active Substance: MORNIFLUMATE
  24. NAPROXEN [Suspect]
     Active Substance: NAPROXEN
  25. PNEUMOCOCCAL VACCINE POLYVALENT NOS [Suspect]
     Active Substance: PNEUMOCOCCAL VACCINE, POLYVALENT
  26. PREDNISONE [Suspect]
     Active Substance: PREDNISONE
  27. PREVNAR 13 [Suspect]
     Active Substance: STREPTOCOCCUS PNEUMONIAE TYPE 1 CAPSULAR POLYSACCHARIDE DIPHTHERIA CRM197 PROTEIN CONJUGATE ANTIGEN\
  28. RAMIPRIL [Suspect]
     Active Substance: RAMIPRIL
  29. ROSUVASTATIN [Suspect]
     Active Substance: ROSUVASTATIN\ROSUVASTATIN CALCIUM
  30. ALBUTEROL SULFATE [Suspect]
     Active Substance: ALBUTEROL SULFATE
  31. SPIRIVA [Suspect]
     Active Substance: TIOTROPIUM BROMIDE MONOHYDRATE
  32. SYMBICORT [Suspect]
     Active Substance: BUDESONIDE\FORMOTEROL FUMARATE DIHYDRATE
  33. TAMSULOSIN HYDROCHLORIDE [Suspect]
     Active Substance: TAMSULOSIN HYDROCHLORIDE
  34. PANTOPRAZOLE SODIUM [Suspect]
     Active Substance: PANTOPRAZOLE SODIUM
  35. PREGABALIN [Suspect]
     Active Substance: PREGABALIN

REACTIONS (23)
  - Asthma [Unknown]
  - Benign prostatic hyperplasia [Unknown]
  - Breath sounds abnormal [Unknown]
  - Bronchiectasis [Unknown]
  - Chronic obstructive pulmonary disease [Unknown]
  - Congenital hiatus hernia [Unknown]
  - Coronary artery disease [Unknown]
  - Dyspnoea [Unknown]
  - Dyspnoea exertional [Unknown]
  - Full blood count abnormal [Unknown]
  - Gastrooesophageal reflux disease [Unknown]
  - Hypercholesterolaemia [Unknown]
  - Hypertension [Unknown]
  - Joint injury [Unknown]
  - Loss of personal independence in daily activities [Unknown]
  - Malignant melanoma in situ [Unknown]
  - Micturition urgency [Unknown]
  - Obstructive airways disorder [Unknown]
  - Off label use [Unknown]
  - Productive cough [Unknown]
  - Therapeutic product effect incomplete [Unknown]
  - Transient ischaemic attack [Unknown]
  - Wheezing [Unknown]
